FAERS Safety Report 24842092 (Version 1)
Quarter: 2025Q1

REPORT INFORMATION
  Report Type: Spontaneous
  Country: JP (occurrence: JP)
  Receive Date: 20250115
  Receipt Date: 20250115
  Transmission Date: 20250409
  Serious: Yes (Other)
  Sender: NOVARTIS
  Company Number: JP-002147023-NVSJ2025JP000480

PATIENT
  Age: 28 Year
  Sex: Female
  Weight: 61 kg

DRUGS (3)
  1. VOTRIENT [Suspect]
     Active Substance: PAZOPANIB HYDROCHLORIDE
     Indication: Product used for unknown indication
     Dosage: 1 DOSAGE FORM, QD
     Route: 048
     Dates: start: 20240627, end: 20241119
  2. TRAMADOL HYDROCHLORIDE [Concomitant]
     Active Substance: TRAMADOL HYDROCHLORIDE
     Indication: Product used for unknown indication
     Route: 048
  3. TRANILAST [Concomitant]
     Active Substance: TRANILAST
     Indication: Product used for unknown indication
     Route: 048

REACTIONS (2)
  - Enteritis [Recovered/Resolved]
  - Pyrexia [Recovered/Resolved]
